FAERS Safety Report 19777954 (Version 1)
Quarter: 2021Q3

REPORT INFORMATION
  Report Type: Spontaneous
  Country: US (occurrence: US)
  Receive Date: 20210901
  Receipt Date: 20210901
  Transmission Date: 20211014
  Serious: Yes (Other)
  Sender: FDA-Public Use
  Company Number: None

PATIENT
  Age: 63 Year
  Sex: Male
  Weight: 84.6 kg

DRUGS (4)
  1. SUNITINIB [Suspect]
     Active Substance: SUNITINIB
     Indication: RENAL CANCER
     Route: 048
     Dates: start: 20201224
  2. CYANOCOBALAMIN. [Concomitant]
     Active Substance: CYANOCOBALAMIN
  3. ZOMETA [Concomitant]
     Active Substance: ZOLEDRONIC ACID
  4. CALCIUM 500+D [Concomitant]
     Active Substance: CALCIUM\VITAMIN D

REACTIONS (4)
  - Wound [None]
  - Hypertension [None]
  - White blood cell count decreased [None]
  - Diarrhoea [None]

NARRATIVE: CASE EVENT DATE: 20210901
